FAERS Safety Report 6903222-0 (Version None)
Quarter: 2010Q3

REPORT INFORMATION
  Report Type: 
  Country: None (occurrence: None)
  Receive Date: 20100803
  Receipt Date: 20080905
  Transmission Date: 20110219
  Serious: No
  Sender: FDA-Public Use
  Company Number: US-PFIZER INC-2008074596

PATIENT
  Sex: Female

DRUGS (3)
  1. LYRICA [Suspect]
  2. INSULIN [Concomitant]
  3. LEVOTHYROXINE [Concomitant]

REACTIONS (2)
  - DRUG INEFFECTIVE [None]
  - MEDICATION RESIDUE [None]
